FAERS Safety Report 24634237 (Version 1)
Quarter: 2024Q4

REPORT INFORMATION
  Report Type: Report from Study
  Country: US (occurrence: US)
  Receive Date: 20241119
  Receipt Date: 20241119
  Transmission Date: 20250114
  Serious: Yes (Hospitalization)
  Sender: ABBVIE
  Company Number: US-ABBVIE-5971736

PATIENT
  Age: 49 Year
  Sex: Female

DRUGS (2)
  1. HUMIRA [Suspect]
     Active Substance: ADALIMUMAB
     Indication: Psoriatic arthropathy
     Dosage: CITRATE FREE
     Route: 058
     Dates: start: 20240716
  2. METHOTREXATE [Concomitant]
     Active Substance: METHOTREXATE
     Indication: Arthritis

REACTIONS (15)
  - Cholelithiasis [Unknown]
  - Hepatic cyst [Unknown]
  - Back pain [Not Recovered/Not Resolved]
  - Uterine leiomyoma [Unknown]
  - Polyarthritis [Unknown]
  - Musculoskeletal disorder [Unknown]
  - Osteoporosis [Recovering/Resolving]
  - Arthralgia [Not Recovered/Not Resolved]
  - Staphylococcal infection [Recovered/Resolved]
  - Autoimmune disorder [Unknown]
  - Neck pain [Not Recovered/Not Resolved]
  - Gastritis [Unknown]
  - Pain in extremity [Not Recovered/Not Resolved]
  - Dactylitis [Recovering/Resolving]
  - Vitamin B12 deficiency [Recovering/Resolving]

NARRATIVE: CASE EVENT DATE: 20240101
